FAERS Safety Report 9171307 (Version 1)
Quarter: 2013Q1

REPORT INFORMATION
  Report Type: Spontaneous
  Country: IT (occurrence: IT)
  Receive Date: 20130319
  Receipt Date: 20130319
  Transmission Date: 20140127
  Serious: Yes (Hospitalization)
  Sender: FDA-Public Use
  Company Number: IT-PFIZER INC-2013087199

PATIENT
  Sex: Male

DRUGS (2)
  1. CEFIXIME [Suspect]
  2. IBUPROFEN [Suspect]

REACTIONS (1)
  - Myalgia [Recovering/Resolving]
